FAERS Safety Report 5683854-0 (Version None)
Quarter: 2008Q1

REPORT INFORMATION
  Report Type: 
  Country: None (occurrence: None)
  Receive Date: 20080326
  Receipt Date: 20070806
  Transmission Date: 20080703
  Serious: Yes (Hospitalization)
  Sender: FDA-Public Use
  Company Number: 6036568

PATIENT
  Age: 61 Year
  Sex: Female

DRUGS (5)
  1. GLUCOVANCE [Suspect]
     Indication: DRUG USE FOR UNKNOWN INDICATION
     Dates: end: 20070407
  2. DETENSIEL  (BISOPROLOL FUMARATE) [Concomitant]
  3. COAPROVEL   (HYDROCHLOROTHIAZIDE, IRBESARTAN) [Concomitant]
  4. HYPERIUM   (RILMENIDINE) [Concomitant]
  5. ATORVASTATIN CALCIUM [Concomitant]

REACTIONS (7)
  - DIABETIC NEPHROPATHY [None]
  - DRUG TOXICITY [None]
  - HAEMODIALYSIS [None]
  - HYPERVOLAEMIA [None]
  - LACTIC ACIDOSIS [None]
  - LUNG DISORDER [None]
  - RENAL FAILURE ACUTE [None]
